FAERS Safety Report 6854968-4 (Version None)
Quarter: 2010Q3

REPORT INFORMATION
  Report Type: 
  Country: None (occurrence: None)
  Receive Date: 20100717
  Receipt Date: 20080310
  Transmission Date: 20110219
  Serious: Yes (Other)
  Sender: FDA-Public Use
  Company Number: US-PFIZER INC-2007099358

PATIENT
  Sex: Female
  Weight: 59.4 kg

DRUGS (3)
  1. CHANTIX [Suspect]
     Indication: SMOKING CESSATION THERAPY
     Dates: start: 20070803
  2. MELOXICAM [Concomitant]
     Route: 048
  3. OMEPRAZOLE [Concomitant]
     Route: 048

REACTIONS (1)
  - SUICIDAL IDEATION [None]
